FAERS Safety Report 18943934 (Version 1)
Quarter: 2021Q1

REPORT INFORMATION
  Report Type: Spontaneous
  Country: BR (occurrence: BR)
  Receive Date: 20210226
  Receipt Date: 20210226
  Transmission Date: 20210420
  Serious: Yes (Other)
  Sender: FDA-Public Use
  Company Number: BR-ASTRAZENECA-2021A080676

PATIENT
  Age: 66 Year
  Sex: Female

DRUGS (1)
  1. TAGRISSO [Suspect]
     Active Substance: OSIMERTINIB
     Indication: LUNG CANCER METASTATIC
     Route: 048
     Dates: start: 202009

REACTIONS (9)
  - Diarrhoea [Recovered/Resolved]
  - Alopecia [Recovered/Resolved]
  - Cough [Not Recovered/Not Resolved]
  - Dyspnoea [Not Recovered/Not Resolved]
  - Platelet count decreased [Unknown]
  - Onychoclasis [Recovered/Resolved]
  - Chest discomfort [Not Recovered/Not Resolved]
  - White blood cell count decreased [Unknown]
  - Recurrent cancer [Not Recovered/Not Resolved]
